FAERS Safety Report 6520289-2 (Version None)
Quarter: 2009Q4

REPORT INFORMATION
  Report Type: 
  Country: None (occurrence: None)
  Receive Date: 20091229
  Receipt Date: 20091222
  Transmission Date: 20100525
  Serious: Yes (Life-Threatening, Hospitalization)
  Sender: FDA-Public Use
  Company Number: PHHY2009AU44002

PATIENT
  Sex: Female

DRUGS (10)
  1. CLOZARIL [Suspect]
     Dosage: UNK
     Dates: start: 20090917
  2. CLOZARIL [Suspect]
     Dosage: 175 MG, UNK
     Dates: start: 20090923, end: 20091007
  3. PHENYLEPHRINE [Concomitant]
  4. RISPERIDONE [Concomitant]
     Indication: PSYCHOTIC DISORDER
     Dosage: 25MG, 2 WEEKLY
     Route: 030
  5. METOPROLOL TARTRATE [Concomitant]
     Dosage: 25 MG, BID
     Route: 048
  6. DIAMICRON [Concomitant]
     Indication: DIABETES MELLITUS
     Dosage: 90MG MORNE
     Route: 048
  7. METFORMIN [Concomitant]
     Indication: DIABETES MELLITUS
     Dosage: 2000MG NOCTE
  8. SPIRIVA [Concomitant]
     Indication: CHRONIC OBSTRUCTIVE PULMONARY DISEASE
     Dosage: 18 MG, DAILY
  9. VALSARTAN [Concomitant]
     Indication: HYPERTENSION
     Dosage: 75 MG, MARNE
  10. ROSUVASTATIN [Concomitant]
     Dosage: 20MG NOCTE (LIPIDS)

REACTIONS (15)
  - ATRIAL FIBRILLATION [None]
  - BUNDLE BRANCH BLOCK RIGHT [None]
  - CARDIOMEGALY [None]
  - CHEST PAIN [None]
  - DIZZINESS [None]
  - DYSPNOEA [None]
  - EJECTION FRACTION ABNORMAL [None]
  - HYPERGLYCAEMIA [None]
  - HYPERHIDROSIS [None]
  - MITRAL VALVE INCOMPETENCE [None]
  - NEUTROPHILIA [None]
  - PALPITATIONS [None]
  - RASH MACULO-PAPULAR [None]
  - SYNCOPE [None]
  - TACHYCARDIA [None]
